FAERS Safety Report 8162563-2 (Version None)
Quarter: 2012Q1

REPORT INFORMATION
  Report Type: 
  Country: None (occurrence: None)
  Receive Date: 20120224
  Receipt Date: 20120216
  Transmission Date: 20120608
  Serious: Yes (Other)
  Sender: FDA-Public Use
  Company Number: NL-ABBOTT-12P-114-0905102-00

PATIENT
  Sex: Female

DRUGS (3)
  1. USTEKINUMAB [Concomitant]
     Indication: PSORIASIS
     Dates: start: 20090926
  2. HUMIRA [Suspect]
     Indication: PSORIASIS
     Dosage: INITIAL DOSE
     Route: 058
     Dates: start: 20090618, end: 20090618
  3. HUMIRA [Suspect]
     Route: 058
     Dates: end: 20091209

REACTIONS (1)
  - CERVICAL DYSPLASIA [None]
